FAERS Safety Report 5084620-X (Version None)
Quarter: 2006Q3

REPORT INFORMATION
  Report Type: 
  Country: None (occurrence: None)
  Receive Date: 20060821
  Receipt Date: 20060419
  Transmission Date: 20061208
  Serious: Yes (Other)
  Sender: FDA-Public Use
  Company Number: FR-ROCHE-445178

PATIENT
  Age: 41 Year
  Sex: Female

DRUGS (4)
  1. ROCEPHIN [Suspect]
     Indication: RENAL ABSCESS
     Dosage: DOSAGE REPORTED AS 1 GRAM IN 3.5 ML DOUBLE DOSE WITHIN ONE INJECTION IN THE EVENING (DAILY).
     Route: 058
     Dates: start: 20060128, end: 20060130
  2. ROCEPHIN [Suspect]
     Dosage: DOSAGE REPORTED AS 1 G IN 3.5 ML WITHIN ONE INJECTION IN THE EVENING (DAILY).
     Route: 058
     Dates: start: 20060131, end: 20060228
  3. OFLOCET [Interacting]
     Indication: RENAL ABSCESS
     Dosage: TAKEN ONE IN THE MORNING, ONE IN THE EVENING (A TABLET).
     Route: 048
     Dates: start: 20060126, end: 20060213
  4. OFLOCET [Interacting]
     Dosage: TAKEN ONE IN THE MORNING, ONE IN THE EVENING (A TABLET).
     Route: 048
     Dates: start: 20060218, end: 20060228

REACTIONS (8)
  - BLOOD CREATINE PHOSPHOKINASE INCREASED [None]
  - DRUG INTERACTION [None]
  - FATIGUE [None]
  - HYPERAESTHESIA [None]
  - HYPOAESTHESIA [None]
  - MYALGIA [None]
  - MYOPATHY [None]
  - UNEVALUABLE EVENT [None]
